FAERS Safety Report 14770152 (Version 1)
Quarter: 2018Q2

REPORT INFORMATION
  Report Type: Spontaneous
  Country: US (occurrence: US)
  Receive Date: 20180417
  Receipt Date: 20180417
  Transmission Date: 20180711
  Serious: No
  Sender: FDA-Public Use
  Company Number: US-MYLANLABS-2018M1020882

PATIENT
  Sex: Male
  Weight: 37 kg

DRUGS (1)
  1. FONDAPARINUX SODIUM INJECTION, USP [Suspect]
     Active Substance: FONDAPARINUX SODIUM
     Indication: CORONARY ARTERY ANEURYSM
     Dosage: UNK
     Route: 058

REACTIONS (3)
  - No adverse event [Unknown]
  - Off label use [Unknown]
  - Drug administered to patient of inappropriate age [Unknown]
